FAERS Safety Report 7115782-8 (Version None)
Quarter: 2010Q4

REPORT INFORMATION
  Report Type: 
  Country: None (occurrence: None)
  Receive Date: 20101122
  Receipt Date: 20101116
  Transmission Date: 20110411
  Serious: Yes (Life-Threatening)
  Sender: FDA-Public Use
  Company Number: IT-BAYER-201047113GPV

PATIENT
  Age: 74 Year
  Sex: Male

DRUGS (4)
  1. ASPIRIN [Suspect]
     Indication: THROMBOSIS PROPHYLAXIS
     Dosage: TOTAL DAILY DOSE: 100 MG
     Route: 048
     Dates: start: 20001001, end: 20101010
  2. PRIMESIN [Concomitant]
  3. TRIATEC [Concomitant]
  4. PROPAFENONE HCL [Concomitant]

REACTIONS (2)
  - CEREBRAL HAEMORRHAGE [None]
  - ISCHAEMIC STROKE [None]
